FAERS Safety Report 18969292 (Version 2)
Quarter: 2021Q1

REPORT INFORMATION
  Report Type: Report from Study
  Country: US (occurrence: US)
  Receive Date: 20210304
  Receipt Date: 20210309
  Transmission Date: 20210420
  Serious: No
  Sender: FDA-Public Use
  Company Number: NVSC2021US049749

PATIENT
  Sex: Female

DRUGS (1)
  1. ENTRESTO [Suspect]
     Active Substance: SACUBITRIL\VALSARTAN
     Indication: CARDIAC FAILURE
     Dosage: 0.5 DF, BIW (HALF TABLET OF 24/26MG), (1/2 IN THE AM AND 1/2 IN THE PM)
     Route: 048

REACTIONS (2)
  - Wrong technique in product usage process [Unknown]
  - Off label use [Unknown]
